FAERS Safety Report 16444682 (Version 1)
Quarter: 2019Q3

REPORT INFORMATION
  Report Type: Spontaneous
  Country: US (occurrence: US)
  Receive Date: 20190617
  Receipt Date: 20190617
  Transmission Date: 20191004
  Serious: Yes (Disabling, Other)
  Sender: FDA-Public Use
  Company Number: None

PATIENT
  Age: 24 Year
  Sex: Male
  Weight: 60.75 kg

DRUGS (1)
  1. FINASTERIDE. [Suspect]
     Active Substance: FINASTERIDE
     Indication: ANDROGENETIC ALOPECIA
     Dosage: ?          QUANTITY:1 TABLET(S);?
     Route: 048

REACTIONS (14)
  - Insomnia [None]
  - Muscle atrophy [None]
  - Cortisol increased [None]
  - Muscle spasms [None]
  - Cognitive disorder [None]
  - Skin wrinkling [None]
  - Feeling abnormal [None]
  - Memory impairment [None]
  - Myalgia [None]
  - Reading disorder [None]
  - Muscular weakness [None]
  - Quality of life decreased [None]
  - Gynaecomastia [None]
  - Blood oestrogen increased [None]

NARRATIVE: CASE EVENT DATE: 20181023
